FAERS Safety Report 4776491-3 (Version None)
Quarter: 2005Q3

REPORT INFORMATION
  Report Type: 
  Country: None (occurrence: None)
  Receive Date: 20050915
  Receipt Date: 20050830
  Transmission Date: 20060218
  Serious: Yes (Death)
  Sender: FDA-Public Use
  Company Number: DSA_26958_2005

PATIENT
  Age: 51 Year
  Sex: Female

DRUGS (5)
  1. ATIVAN [Suspect]
     Dosage: DF ONCE
  2. MIRTAZAPINE [Suspect]
     Dosage: DF ONCE
  3. ZOPLICONE [Suspect]
     Dosage: DF ONCE
  4. CHLOROPROMAZINE [Suspect]
     Dosage: DF ONCE
  5. ALCOHOL [Suspect]
     Dosage: DF

REACTIONS (2)
  - INTENTIONAL MISUSE [None]
  - OVERDOSE [None]
